FAERS Safety Report 6490556-X (Version None)
Quarter: 2009Q4

REPORT INFORMATION
  Report Type: 
  Country: None (occurrence: None)
  Receive Date: 20091211
  Receipt Date: 20091202
  Transmission Date: 20100525
  Serious: Yes (Death)
  Sender: FDA-Public Use
  Company Number: CH-PFIZER INC-2009304638

PATIENT
  Age: 44 Year
  Sex: Female

DRUGS (10)
  1. ALDACTONE [Suspect]
     Indication: CONGESTIVE CARDIOMYOPATHY
     Dosage: 25 MG, 1X/DAY
     Route: 048
  2. ASPIRIN [Suspect]
     Indication: CONGESTIVE CARDIOMYOPATHY
     Dosage: 100 MG, 1X/DAY
     Route: 048
  3. IMOVANE [Concomitant]
     Dosage: 7.5 MG, 1X/DAY
     Route: 048
  4. DIGOXIN [Concomitant]
     Dosage: 0.25 MG, FIVE TIMES WEEKLY
     Route: 048
  5. INDERAL [Concomitant]
     Dosage: 10 MG, 1X/DAY
     Route: 048
  6. ENATEC [Concomitant]
     Dosage: 20 MG, 1X/DAY
     Route: 048
  7. TORSEMIDE [Concomitant]
     Dosage: 5 MG, AS NEEDED
     Route: 048
  8. GLUCOPHAGE [Concomitant]
     Dosage: 500 MG, 2X/DAY
     Route: 048
  9. REMERON [Concomitant]
     Dosage: 30 MG, 1X/DAY
     Route: 048
  10. DAFALGAN [Concomitant]
     Dosage: 1 G, 4X/DAY, IF NEEDED
     Route: 048

REACTIONS (1)
  - DUODENAL ULCER HAEMORRHAGE [None]
